FAERS Safety Report 18400410 (Version 14)
Quarter: 2022Q3

REPORT INFORMATION
  Report Type: Report from Study
  Country: CN (occurrence: None)
  Receive Date: 20201019
  Receipt Date: 20220727
  Transmission Date: 20221027
  Serious: Yes (Death, Life-Threatening, Hospitalization)
  Sender: FDA-Public Use
  Company Number: CN-ROCHE-2677950

PATIENT
  Age: 70 Year
  Sex: Male
  Weight: 76 kg

DRUGS (72)
  1. PLACEBO [Suspect]
     Active Substance: UNSPECIFIED INGREDIENT
     Indication: Non-small cell lung cancer
     Route: 041
     Dates: start: 20200805
  2. BEVACIZUMAB [Suspect]
     Active Substance: BEVACIZUMAB
     Indication: Non-small cell lung cancer
     Dosage: THIS WAS THE MOST RECENT DOSE OF BEVACIZUMAB ADMINISTERED PRIOR TO AE/SAE.
     Route: 042
     Dates: start: 20200805
  3. CARBOPLATIN [Suspect]
     Active Substance: CARBOPLATIN
     Indication: Non-small cell lung cancer
     Dosage: THIS WAS THE MOST RECENT DOSE OF CARBOPLATIN ADMINISTERED PRIOR TO AE/SAE.
     Route: 042
     Dates: start: 20200805
  4. PEMETREXED [Suspect]
     Active Substance: PEMETREXED
     Indication: Non-small cell lung cancer
     Dosage: THIS WAS THE MOST RECENT DOSE OF PEMETREXED ADMINISTERED PRIOR TO AE/SAE.
     Route: 042
     Dates: start: 20200805
  5. METFORMIN HYDROCHLORIDE [Concomitant]
     Active Substance: METFORMIN HYDROCHLORIDE
     Dosage: AS ANTIDIABETIC
     Dates: start: 202006
  6. OXYCODONE AND ACETAMINOPHEN [Concomitant]
     Active Substance: ACETAMINOPHEN\OXYCODONE HYDROCHLORIDE
     Dosage: TO RELIEVE PAIN
     Dates: start: 20200710
  7. OXYCODONE AND ACETAMINOPHEN [Concomitant]
     Active Substance: ACETAMINOPHEN\OXYCODONE HYDROCHLORIDE
     Dates: start: 20200730, end: 20201005
  8. OXYCODONE AND ACETAMINOPHEN [Concomitant]
     Active Substance: ACETAMINOPHEN\OXYCODONE HYDROCHLORIDE
     Dates: start: 20200730, end: 20200913
  9. OXYCODONE AND ACETAMINOPHEN [Concomitant]
     Active Substance: ACETAMINOPHEN\OXYCODONE HYDROCHLORIDE
     Dates: start: 20200824, end: 20200830
  10. FOLIC ACID [Concomitant]
     Active Substance: FOLIC ACID
     Dosage: AS FOLIC ACID SUPPLEMENT
     Route: 048
     Dates: start: 20200805
  11. NIFEDIPINE [Concomitant]
     Active Substance: NIFEDIPINE
     Indication: Hypotension
     Dosage: AS ANTIHYPERTENSION
     Dates: start: 20200805, end: 20200929
  12. NIFEDIPINE [Concomitant]
     Active Substance: NIFEDIPINE
     Dates: start: 20200929, end: 20200929
  13. MEGESTROL ACETATE [Concomitant]
     Active Substance: MEGESTROL ACETATE
     Dosage: TO IMPROVE APPETITE
     Dates: start: 20200806
  14. OXYCODONE HYDROCHLORIDE [Concomitant]
     Active Substance: OXYCODONE HYDROCHLORIDE
     Dosage: TO RELIEVE PAIN
     Dates: start: 20200721
  15. CEFOPERAZONE SODIUM\SULBACTAM SODIUM [Concomitant]
     Active Substance: CEFOPERAZONE SODIUM\SULBACTAM SODIUM
     Dates: start: 20200808, end: 20200823
  16. CEFOPERAZONE SODIUM\SULBACTAM SODIUM [Concomitant]
     Active Substance: CEFOPERAZONE SODIUM\SULBACTAM SODIUM
     Dates: start: 20200914, end: 20200929
  17. VORICONAZOLE [Concomitant]
     Active Substance: VORICONAZOLE
     Dates: start: 20200917, end: 20200922
  18. VORICONAZOLE [Concomitant]
     Active Substance: VORICONAZOLE
     Dates: start: 20200929, end: 20201002
  19. GANCICLOVIR [Concomitant]
     Active Substance: GANCICLOVIR
     Dates: start: 20200914, end: 20201005
  20. ESOMEPRAZOLE MAGNESIUM [Concomitant]
     Active Substance: ESOMEPRAZOLE MAGNESIUM
     Indication: Prophylaxis
     Dosage: TO PROTECT STOMACH
     Dates: start: 20200914, end: 20200923
  21. IPRATROPIUM BROMIDE [Concomitant]
     Active Substance: IPRATROPIUM BROMIDE
     Dates: start: 20200915, end: 20201005
  22. IPRATROPIUM BROMIDE [Concomitant]
     Active Substance: IPRATROPIUM BROMIDE
     Dates: start: 20200809, end: 20200823
  23. AMBROXOL HYDROCHLORIDE [Concomitant]
     Active Substance: AMBROXOL HYDROCHLORIDE
     Indication: Productive cough
     Dates: start: 20200914, end: 20201005
  24. AMBROXOL HYDROCHLORIDE [Concomitant]
     Active Substance: AMBROXOL HYDROCHLORIDE
     Dates: start: 20020809, end: 20200823
  25. ENOXAPARIN SODIUM [Concomitant]
     Active Substance: ENOXAPARIN SODIUM
     Dosage: FOR ANTICOAGULATION AND ANTITHROMBOSIS
     Dates: start: 20200916, end: 20200916
  26. ENOXAPARIN SODIUM [Concomitant]
     Active Substance: ENOXAPARIN SODIUM
     Dates: start: 20200918, end: 20200930
  27. ENOXAPARIN SODIUM [Concomitant]
     Active Substance: ENOXAPARIN SODIUM
     Dates: start: 20200915, end: 20200915
  28. DOXOFYLLINE [Concomitant]
     Active Substance: DOXOFYLLINE
     Indication: Bronchiectasis
     Dates: start: 20200913, end: 20200914
  29. DOXOFYLLINE [Concomitant]
     Active Substance: DOXOFYLLINE
     Indication: Asthma
  30. FAMOTIDINE [Concomitant]
     Active Substance: FAMOTIDINE
     Dates: start: 20200913, end: 20200914
  31. ALPROSTADIL [Concomitant]
     Active Substance: ALPROSTADIL
     Dates: start: 20200914, end: 20200914
  32. LACTULOSE [Concomitant]
     Active Substance: LACTULOSE
     Route: 048
     Dates: start: 20200914, end: 20200922
  33. LACTULOSE [Concomitant]
     Active Substance: LACTULOSE
     Dates: start: 20200824, end: 20200830
  34. SULFAMETHOXAZOLE [Concomitant]
     Active Substance: SULFAMETHOXAZOLE
     Dates: start: 20200915, end: 20201005
  35. THYMALFASIN [Concomitant]
     Active Substance: THYMALFASIN
     Dates: start: 20200917, end: 20200921
  36. ACETYLCYSTEINE [Concomitant]
     Active Substance: ACETYLCYSTEINE
     Dates: start: 20200922, end: 20201005
  37. OLANZAPINE [Concomitant]
     Active Substance: OLANZAPINE
     Dates: start: 20200922, end: 20200922
  38. OLANZAPINE [Concomitant]
     Active Substance: OLANZAPINE
     Dates: start: 20200924, end: 20201005
  39. BISOPROLOL FUMARATE [Concomitant]
     Active Substance: BISOPROLOL FUMARATE
     Dates: start: 20200928, end: 20201005
  40. MEROPENEM [Concomitant]
     Active Substance: MEROPENEM
     Dates: start: 20200929, end: 20201005
  41. AMLODIPINE BESYLATE [Concomitant]
     Active Substance: AMLODIPINE BESYLATE
     Dates: start: 20200929, end: 20201005
  42. PREDNISONE ACETATE [Concomitant]
     Active Substance: PREDNISONE ACETATE
     Dates: start: 20201001, end: 20201005
  43. CASPOFUNGIN ACETATE [Concomitant]
     Active Substance: CASPOFUNGIN ACETATE
     Dates: start: 20201003, end: 20201005
  44. FENTANYL TRANSDERMAL SYSTEM [Concomitant]
     Active Substance: FENTANYL
     Dates: start: 20200914, end: 20200914
  45. GLYCERIN [Concomitant]
     Active Substance: GLYCERIN
     Dates: start: 20200920, end: 20200920
  46. DIAZEPAM [Concomitant]
     Active Substance: DIAZEPAM
     Dates: start: 20200922, end: 20200922
  47. POTASSIUM CHLORIDE [Concomitant]
     Active Substance: POTASSIUM CHLORIDE
     Dates: start: 20200924, end: 20200924
  48. FUROSEMIDE [Concomitant]
     Active Substance: FUROSEMIDE
     Indication: Polyuria
     Dates: start: 20200928, end: 20200928
  49. MONTMORILLONITE [Concomitant]
     Active Substance: MONTMORILLONITE
     Dates: start: 20201001, end: 20201001
  50. RACEANISODAMINE HYDROCHLORIDE [Concomitant]
     Indication: Muscle spasms
     Dates: start: 20201001, end: 20201001
  51. TRAMADOL HYDROCHLORIDE [Concomitant]
     Active Substance: TRAMADOL HYDROCHLORIDE
     Dates: start: 20201002, end: 20201002
  52. EPINEPHRINE [Concomitant]
     Active Substance: EPINEPHRINE
     Dates: start: 20201005, end: 20201005
  53. DOPAMINE HYDROCHLORIDE [Concomitant]
     Active Substance: DOPAMINE HYDROCHLORIDE
     Dates: start: 20201005, end: 20201005
  54. SODIUM BICARBONATE [Concomitant]
     Active Substance: SODIUM BICARBONATE
     Dates: start: 20201005, end: 20201005
  55. ALBUTEROL SULFATE [Concomitant]
     Active Substance: ALBUTEROL SULFATE
     Indication: Bronchiectasis
     Dates: start: 20200917, end: 20200917
  56. BUDESONIDE\FORMOTEROL FUMARATE [Concomitant]
     Active Substance: BUDESONIDE\FORMOTEROL FUMARATE
     Indication: Bronchiectasis
     Dosage: 9 UG
     Route: 045
     Dates: start: 20200917, end: 20200917
  57. SULBACTAM SODIUM [Concomitant]
     Active Substance: SULBACTAM SODIUM
     Dates: start: 20200808, end: 20200823
  58. OMEPRAZOLE SODIUM [Concomitant]
     Active Substance: OMEPRAZOLE SODIUM
     Dates: start: 20200809, end: 20200823
  59. ORNIDAZOLE [Concomitant]
     Active Substance: ORNIDAZOLE
     Indication: Infection
     Dates: start: 20200810, end: 20200823
  60. GLUTATHIONE [Concomitant]
     Active Substance: GLUTATHIONE
     Dates: start: 20200808, end: 20200822
  61. FLURBIPROFEN AXETIL [Concomitant]
     Active Substance: FLURBIPROFEN AXETIL
     Indication: Pain
     Dates: start: 20200809, end: 20200822
  62. MOSAPRIDE CITRATE [Concomitant]
     Active Substance: MOSAPRIDE CITRATE
     Dates: start: 20200817, end: 20200824
  63. MOSAPRIDE CITRATE [Concomitant]
     Active Substance: MOSAPRIDE CITRATE
     Dates: start: 20200824, end: 20200830
  64. ITOPRIDE HYDROCHLORIDE [Concomitant]
     Active Substance: ITOPRIDE HYDROCHLORIDE
     Dates: start: 20200819, end: 20200824
  65. PULMICORT RESPULES [Concomitant]
     Active Substance: BUDESONIDE
     Indication: Productive cough
     Dates: start: 20200810, end: 20200823
  66. ALANYL GLUTAMINE [Concomitant]
     Active Substance: ALANYL GLUTAMINE
     Dates: start: 20200811, end: 20200823
  67. GLYCERIN\LECITHIN\MEDIUM-CHAIN TRIGLYCERIDES\SOYBEAN OIL [Concomitant]
     Active Substance: GLYCERIN\LECITHIN\MEDIUM-CHAIN TRIGLYCERIDES\SOYBEAN OIL
     Dates: start: 20200811, end: 20200823
  68. VITAMINS [Concomitant]
     Active Substance: VITAMINS
     Dates: start: 20200811, end: 20200823
  69. COMPOUND AMINO ACIDS INJECTION (18AA-IX) [Concomitant]
     Dates: start: 20200811, end: 20200823
  70. CEFUROXIME AXETIL [Concomitant]
     Active Substance: CEFUROXIME AXETIL
     Indication: Infection
     Dates: start: 20200824, end: 20200830
  71. OPRELVEKIN [Concomitant]
     Active Substance: OPRELVEKIN
     Dates: start: 20200813, end: 20200814
  72. DEXTROSE [Concomitant]
     Active Substance: DEXTROSE
     Dates: start: 20200811, end: 20200823

REACTIONS (2)
  - Pneumonia [Fatal]
  - Respiratory failure [Not Recovered/Not Resolved]

NARRATIVE: CASE EVENT DATE: 20200913
